FAERS Safety Report 8499600-1 (Version None)
Quarter: 2012Q3

REPORT INFORMATION
  Report Type: 
  Country: None (occurrence: None)
  Receive Date: 20120710
  Receipt Date: 20120702
  Transmission Date: 20120928
  Serious: Yes (Congenital Anomaly)
  Sender: FDA-Public Use
  Company Number: US-JNJFOC-20120518340

PATIENT
  Sex: Male

DRUGS (4)
  1. TOPAMAX [Suspect]
     Indication: FOETAL EXPOSURE DURING PREGNANCY
     Route: 064
     Dates: start: 20070801, end: 20070901
  2. LEVOTHYROXINE SODIUM [Suspect]
     Indication: FOETAL EXPOSURE DURING PREGNANCY
     Route: 064
  3. SINGULAIR [Suspect]
     Indication: FOETAL EXPOSURE DURING PREGNANCY
     Route: 064
  4. TOPAMAX [Suspect]
     Route: 064
     Dates: start: 20071001, end: 20071101

REACTIONS (4)
  - HYPOSPADIAS [None]
  - CHORDEE [None]
  - SOCIAL AVOIDANT BEHAVIOUR [None]
  - EMOTIONAL DISTRESS [None]
